FAERS Safety Report 17463408 (Version 3)
Quarter: 2020Q3

REPORT INFORMATION
  Report Type: Spontaneous
  Country: IT (occurrence: IT)
  Receive Date: 20200226
  Receipt Date: 20200819
  Transmission Date: 20201102
  Serious: Yes (Other)
  Sender: FDA-Public Use
  Company Number: IT-PFIZER INC-2020085772

PATIENT
  Age: 52 Year
  Sex: Male

DRUGS (23)
  1. PREDNISONE. [Suspect]
     Active Substance: PREDNISONE
     Indication: DIFFUSE LARGE B-CELL LYMPHOMA
     Dosage: UNK
     Route: 065
     Dates: start: 201507, end: 201510
  2. BENDAMUSTINE [Suspect]
     Active Substance: BENDAMUSTINE
     Indication: DIFFUSE LARGE B-CELL LYMPHOMA
     Dosage: UNK
     Route: 065
     Dates: start: 20170329, end: 20170706
  3. FOTEMUSTINE [Concomitant]
     Active Substance: FOTEMUSTINE
     Dosage: UNK
  4. CISPLATIN. [Suspect]
     Active Substance: CISPLATIN
     Indication: DIFFUSE LARGE B-CELL LYMPHOMA
     Dosage: UNK
     Route: 065
     Dates: start: 201602, end: 201604
  5. CYTARABINE. [Suspect]
     Active Substance: CYTARABINE
     Indication: DIFFUSE LARGE B-CELL LYMPHOMA
     Dosage: UNK
     Route: 065
     Dates: start: 201602, end: 201604
  6. DEXAMETHASONE SODIUM PHOSPHATE. [Suspect]
     Active Substance: DEXAMETHASONE SODIUM PHOSPHATE
     Indication: DIFFUSE LARGE B-CELL LYMPHOMA
     Dosage: UNK
     Route: 065
     Dates: start: 201602, end: 201604
  7. OXALIPLATIN. [Suspect]
     Active Substance: OXALIPLATIN
     Indication: DIFFUSE LARGE B-CELL LYMPHOMA
     Dosage: UNK
     Route: 065
     Dates: start: 201709, end: 201805
  8. BEVACIZUMAB. [Suspect]
     Active Substance: BEVACIZUMAB
     Dosage: 10 MG/KG
     Route: 065
     Dates: start: 20191210
  9. CYCLOPHOSPHAMIDE. [Suspect]
     Active Substance: CYCLOPHOSPHAMIDE
     Indication: DIFFUSE LARGE B-CELL LYMPHOMA
     Dosage: UNK
     Route: 065
     Dates: start: 201507, end: 201510
  10. MELPHALAN. [Concomitant]
     Active Substance: MELPHALAN
     Dosage: UNK
  11. RITUXIMAB. [Suspect]
     Active Substance: RITUXIMAB
     Dosage: UNK
     Route: 065
     Dates: start: 201512, end: 201601
  12. RITUXIMAB. [Suspect]
     Active Substance: RITUXIMAB
     Dosage: UNK
     Route: 065
     Dates: start: 201507, end: 201510
  13. RITUXIMAB. [Suspect]
     Active Substance: RITUXIMAB
     Dosage: UNK
     Route: 065
     Dates: start: 201709, end: 201805
  14. GEMCITABINE HYDROCHLORIDE. [Suspect]
     Active Substance: GEMCITABINE HYDROCHLORIDE
     Indication: DIFFUSE LARGE B-CELL LYMPHOMA
     Dosage: UNK
     Route: 065
     Dates: start: 201709, end: 201805
  15. VINCRISTINE SULFATE. [Suspect]
     Active Substance: VINCRISTINE SULFATE
     Indication: DIFFUSE LARGE B-CELL LYMPHOMA
     Dosage: UNK
     Route: 065
     Dates: start: 201507, end: 201510
  16. DOXORUBICIN HCL [Suspect]
     Active Substance: DOXORUBICIN HYDROCHLORIDE
     Indication: DIFFUSE LARGE B-CELL LYMPHOMA
     Dosage: UNK
     Route: 065
     Dates: start: 201507, end: 201510
  17. RITUXIMAB. [Suspect]
     Active Substance: RITUXIMAB
     Indication: DIFFUSE LARGE B-CELL LYMPHOMA
     Dosage: UNK
     Route: 065
     Dates: start: 20170329, end: 20170706
  18. IFOSFAMIDE. [Suspect]
     Active Substance: IFOSFAMIDE
     Indication: DIFFUSE LARGE B-CELL LYMPHOMA
     Dosage: UNK
     Route: 065
     Dates: start: 201709, end: 201805
  19. LENALIDOMIDE [Suspect]
     Active Substance: LENALIDOMIDE
     Indication: DIFFUSE LARGE B-CELL LYMPHOMA
     Dosage: UNK
     Route: 065
     Dates: start: 201709, end: 201805
  20. PIXANTRONE [Concomitant]
     Active Substance: PIXANTRONE
     Dosage: UNK
     Route: 065
     Dates: start: 201807
  21. MITOXANTRONE [Concomitant]
     Active Substance: MITOXANTRONE HYDROCHLORIDE
     Dosage: UNK
     Route: 065
     Dates: start: 20190322
  22. ETOPOSIDE. [Concomitant]
     Active Substance: ETOPOSIDE
     Dosage: UNK
  23. RITUXIMAB. [Suspect]
     Active Substance: RITUXIMAB
     Dosage: UNK
     Route: 065
     Dates: start: 201602, end: 201604

REACTIONS (1)
  - Pneumonitis [Unknown]
